FAERS Safety Report 6015128-2 (Version None)
Quarter: 2008Q4

REPORT INFORMATION
  Report Type: 
  Country: None (occurrence: None)
  Receive Date: 20081218
  Receipt Date: 20081202
  Transmission Date: 20090506
  Serious: Yes (Hospitalization)
  Sender: FDA-Public Use
  Company Number: KV200800855

PATIENT
  Age: 76 Year
  Sex: Male
  Weight: 80.7 kg

DRUGS (4)
  1. ISOSORBIDE MONONITRATE [Suspect]
     Indication: HYPERTENSION
     Dosage: 30 MG, QD, ORAL
     Route: 048
     Dates: start: 20080801, end: 20081121
  2. NEXIUM [Concomitant]
  3. PLAVIX [Concomitant]
  4. ASPIRIN [Concomitant]

REACTIONS (3)
  - CEREBROVASCULAR ACCIDENT [None]
  - PRODUCT QUALITY ISSUE [None]
  - SPEECH DISORDER [None]
